FAERS Safety Report 5105301-X (Version None)
Quarter: 2006Q3

REPORT INFORMATION
  Report Type: 
  Country: None (occurrence: None)
  Receive Date: 20060912
  Receipt Date: 20060904
  Transmission Date: 20061208
  Serious: Yes (Other)
  Sender: FDA-Public Use
  Company Number: 2006BI012454

PATIENT
  Age: 39 Year
  Sex: Female

DRUGS (1)
  1. AVONEX [Suspect]
     Indication: MULTIPLE SCLEROSIS
     Dosage: 30 UG;QW;IM
     Route: 030

REACTIONS (4)
  - MEGAKARYOCYTES [None]
  - MULTIPLE SCLEROSIS RELAPSE [None]
  - MYELODYSPLASTIC SYNDROME [None]
  - RED BLOOD CELL ABNORMALITY [None]
